FAERS Safety Report 7470315-1 (Version None)
Quarter: 2011Q2

REPORT INFORMATION
  Report Type: 
  Country: None (occurrence: None)
  Receive Date: 20110510
  Receipt Date: 20110427
  Transmission Date: 20111010
  Serious: Yes (Hospitalization, Other)
  Sender: FDA-Public Use
  Company Number: IT-BAYER-2011-035818

PATIENT
  Age: 17 Year
  Sex: Female
  Weight: 63 kg

DRUGS (7)
  1. LANSOPRAZOLE [Concomitant]
     Indication: GASTROINTESTINAL DISORDER
  2. MORPHINE [Concomitant]
     Indication: BACK PAIN
  3. MORPHINE [Concomitant]
     Indication: GASTROINTESTINAL DISORDER
  4. ONDANSETRON [Concomitant]
     Indication: BACK PAIN
  5. ACETAMINOPHEN [Suspect]
  6. ONDANSETRON [Concomitant]
     Indication: GASTROINTESTINAL DISORDER
  7. LANSOPRAZOLE [Concomitant]
     Indication: BACK PAIN

REACTIONS (1)
  - TUBULOINTERSTITIAL NEPHRITIS [None]
